FAERS Safety Report 22251761 (Version 1)
Quarter: 2023Q2

REPORT INFORMATION
  Report Type: Spontaneous
  Country: CN (occurrence: CN)
  Receive Date: 20230425
  Receipt Date: 20230425
  Transmission Date: 20230722
  Serious: Yes (Other)
  Sender: FDA-Public Use
  Company Number: CN-009507513-2304CHN008868

PATIENT
  Age: 35 Year
  Sex: Female
  Weight: 70 kg

DRUGS (1)
  1. STEGLATRO [Suspect]
     Active Substance: ERTUGLIFLOZIN PIDOLATE
     Indication: Diabetes mellitus
     Dosage: 0.5 MILLIGRAMS (MG), DAILY (QD)
     Route: 048
     Dates: start: 20230323, end: 20230327

REACTIONS (3)
  - Diabetic ketosis [Recovering/Resolving]
  - Urinary occult blood positive [Unknown]
  - Glucose urine [Unknown]

NARRATIVE: CASE EVENT DATE: 20230323
